FAERS Safety Report 21394400 (Version 1)
Quarter: 2022Q3

REPORT INFORMATION
  Report Type: Spontaneous
  Country: US (occurrence: None)
  Receive Date: 20220930
  Receipt Date: 20220930
  Transmission Date: 20221027
  Serious: No
  Sender: FDA-Public Use
  Company Number: US-Merck Healthcare KGaA-9349851

PATIENT
  Age: 50 Year
  Sex: Female
  Weight: 93 kg

DRUGS (1)
  1. REBIF [Suspect]
     Active Substance: INTERFERON BETA-1A
     Indication: Relapsing-remitting multiple sclerosis
     Route: 058
     Dates: start: 2013, end: 2022

REACTIONS (6)
  - Cognitive disorder [Unknown]
  - Affective disorder [Unknown]
  - Magnetic resonance imaging abnormal [Unknown]
  - Obesity [Unknown]
  - Osteoarthritis [Unknown]
  - Dysaesthesia [Unknown]
